FAERS Safety Report 12728260 (Version 1)
Quarter: 2016Q3

REPORT INFORMATION
  Report Type: Spontaneous
  Country: US (occurrence: US)
  Receive Date: 20160909
  Receipt Date: 20160909
  Transmission Date: 20161109
  Serious: Yes (Hospitalization, Other)
  Sender: FDA-Public Use
  Company Number: None

PATIENT
  Age: 61 Year
  Sex: Female
  Weight: 63.5 kg

DRUGS (12)
  1. LATUDA [Concomitant]
     Active Substance: LURASIDONE HYDROCHLORIDE
  2. FENOFIBRATE. [Concomitant]
     Active Substance: FENOFIBRATE
  3. SIMVASTIN [Concomitant]
     Active Substance: SIMVASTATIN
  4. MUCINEX [Concomitant]
     Active Substance: GUAIFENESIN
  5. ONDANSETRON - GENERIC FOR ZOFRAN WINSTON [Suspect]
     Active Substance: ONDANSETRON
     Indication: NAUSEA
     Route: 048
     Dates: start: 20151112, end: 20160823
  6. CENTRUM SILVER [Concomitant]
     Active Substance: MINERALS\VITAMINS
  7. ZYRTEC [Concomitant]
     Active Substance: CETIRIZINE HYDROCHLORIDE
  8. CITRACAL [Concomitant]
     Active Substance: CALCIUM CITRATE
  9. HAIR SKIN AND NAILS W/ BIOTIN [Concomitant]
  10. TEA [Concomitant]
     Active Substance: TEA LEAF
  11. DIAZEPAM. [Concomitant]
     Active Substance: DIAZEPAM
  12. NASACORT [Concomitant]
     Active Substance: TRIAMCINOLONE ACETONIDE

REACTIONS (1)
  - Serotonin syndrome [None]

NARRATIVE: CASE EVENT DATE: 20160823
